FAERS Safety Report 10213769 (Version 2)
Quarter: 2014Q2

REPORT INFORMATION
  Report Type: Report from Study
  Country: GR (occurrence: GR)
  Receive Date: 20140603
  Receipt Date: 20140626
  Transmission Date: 20141212
  Serious: No
  Sender: FDA-Public Use
  Company Number: GR-ASTELLAS-2014EU006561

PATIENT
  Age: 74 Year
  Sex: Male

DRUGS (7)
  1. MICAFUNGIN [Suspect]
     Indication: ANTIFUNGAL PROPHYLAXIS
     Route: 042
     Dates: start: 20131112, end: 20131119
  2. LORDIN                             /00661202/ [Concomitant]
     Indication: PROPHYLAXIS AGAINST GASTROINTESTINAL ULCER
     Dosage: UNK UNK, TWICE DAILY
     Route: 042
     Dates: start: 20131107
  3. MERONEM [Concomitant]
     Indication: BACTERIAL INFECTION
     Dosage: UNK UNK, THRICE DAILY
     Route: 042
     Dates: start: 20131107, end: 20131115
  4. ZYVOXID [Concomitant]
     Indication: BACTERIAL INFECTION
     Dosage: UNK UNK, TWICE DAILY
     Route: 042
     Dates: start: 20131107
  5. ATROVENT [Concomitant]
     Indication: LUNG DISORDER
     Dosage: 500 MCG/2ML, ONCE DAILY
     Route: 055
     Dates: start: 20131111
  6. PULMICORT [Concomitant]
     Indication: RESPIRATORY DISORDER
     Route: 055
     Dates: start: 20131111
  7. ANXTRA [Concomitant]
     Indication: THROMBOSIS PROPHYLAXIS
     Route: 042
     Dates: start: 20131107

REACTIONS (2)
  - Off label use [Unknown]
  - Intentional product misuse [Unknown]
